FAERS Safety Report 8829422 (Version 2)
Quarter: 2013Q1

REPORT INFORMATION
  Report Type: Report from Study
  Country: JP (occurrence: JP)
  Receive Date: 20121008
  Receipt Date: 20130131
  Transmission Date: 20140127
  Serious: Yes (Hospitalization)
  Sender: FDA-Public Use
  Company Number: JP-VERTEX PHARMACEUTICAL INC.-2012-022324

PATIENT
  Age: 66 Year
  Sex: Female

DRUGS (8)
  1. VX-950 (TELAPREVIR) [Suspect]
     Indication: CHRONIC HEPATITIS C
     Dosage: 1500 MG, QD
     Route: 048
     Dates: start: 20120324, end: 20120413
  2. VX-950 (TELAPREVIR) [Suspect]
     Dosage: 1000 MG, QD
     Route: 048
     Dates: start: 20120414, end: 20120616
  3. REBETOL [Suspect]
     Indication: CHRONIC HEPATITIS C
     Dosage: 400 MG, QD
     Route: 048
     Dates: start: 20120324, end: 20120427
  4. REBETOL [Suspect]
     Dosage: 200 MG, QD
     Route: 048
     Dates: start: 20120428, end: 20120627
  5. PEGINTERFERON ALFA-2B [Concomitant]
     Dosage: 1.2 ?G/KG, WEEK
     Route: 058
     Dates: start: 20120324
  6. PEGINTERFERON ALFA-2B [Concomitant]
     Dosage: 1.5 ?G/KG, WEEK
     Route: 058
     Dates: end: 20120623
  7. LOXONIN [Concomitant]
     Dosage: 60 MG, PRN
     Route: 048
     Dates: start: 20120324
  8. MUCOSTA [Concomitant]
     Dosage: 100 MG, PRN
     Route: 048
     Dates: start: 20120324

REACTIONS (1)
  - Rhabdomyolysis [Recovered/Resolved]
